FAERS Safety Report 7932852-2 (Version None)
Quarter: 2011Q4

REPORT INFORMATION
  Report Type: 
  Country: None (occurrence: None)
  Receive Date: 20111122
  Receipt Date: 20111109
  Transmission Date: 20120403
  Serious: Yes (Hospitalization, Other)
  Sender: FDA-Public Use
  Company Number: JP-PFIZER INC-2011255844

PATIENT
  Age: 51 Year
  Sex: Female
  Weight: 82 kg

DRUGS (5)
  1. ACTOS [Concomitant]
     Indication: DIABETES MELLITUS
     Dosage: UNK
     Route: 048
     Dates: start: 20110114, end: 20110603
  2. URSO 250 [Concomitant]
     Indication: LIVER DISORDER
  3. LIPITOR [Suspect]
     Indication: DYSLIPIDAEMIA
     Dosage: 10 MG, DAILY
     Route: 048
     Dates: start: 20100820, end: 20110603
  4. AMARYL [Concomitant]
     Indication: DIABETES MELLITUS
     Dosage: 1MG
     Dates: start: 20110411, end: 20110603
  5. URSO 250 [Concomitant]
     Indication: HEPATIC STEATOSIS
     Dosage: 300 MG, DAILY
     Route: 048
     Dates: start: 20100820

REACTIONS (6)
  - RHABDOMYOLYSIS [None]
  - GLYCOSYLATED HAEMOGLOBIN INCREASED [None]
  - LOW DENSITY LIPOPROTEIN INCREASED [None]
  - DEHYDRATION [None]
  - MUSCULAR WEAKNESS [None]
  - DIABETES MELLITUS [None]
